FAERS Safety Report 11804952 (Version 1)
Quarter: 2015Q4

REPORT INFORMATION
  Report Type: Spontaneous
  Country: US (occurrence: US)
  Receive Date: 20151205
  Receipt Date: 20151205
  Transmission Date: 20160305
  Serious: No
  Sender: FDA-Public Use
  Company Number: US-BAUSCH-BL-2014-010807

PATIENT
  Sex: Female

DRUGS (3)
  1. XENAZINE [Suspect]
     Active Substance: TETRABENAZINE
     Indication: TARDIVE DYSKINESIA
     Dosage: TITRATION SCHEDULE: WEEK ONE, HALF TABLET EVERY MORNING AND HALF TABLET EVERY EVENING
     Route: 048
     Dates: start: 201411, end: 2014
  2. XENAZINE [Suspect]
     Active Substance: TETRABENAZINE
     Dosage: TITRATION SCHEDULE: WEEK TWO, HALF TABLET EVERY MORNING, HALF TABLET AT NOON, AND HALF TABLET EVERY
     Route: 048
     Dates: start: 2014, end: 2014
  3. XENAZINE [Suspect]
     Active Substance: TETRABENAZINE
     Dosage: TITRATION SCHEDULE: WEEK THREE AND THEREAFTER, ONE TABLET EVERY MORNING, HALF TABLET AT NOON, AND HA
     Route: 048
     Dates: start: 2014

REACTIONS (2)
  - Diarrhoea [Not Recovered/Not Resolved]
  - Off label use [Not Recovered/Not Resolved]

NARRATIVE: CASE EVENT DATE: 2014
